FAERS Safety Report 11099119 (Version 1)
Quarter: 2015Q2

REPORT INFORMATION
  Report Type: Spontaneous
  Country: US (occurrence: None)
  Receive Date: 20150506
  Receipt Date: 20150506
  Transmission Date: 20150821
  Serious: Yes (Other)
  Sender: FDA-Public Use
  Company Number: US-H14001-15-00665

PATIENT
  Age: 85 Year
  Sex: Female

DRUGS (1)
  1. PREDNISONE (PREDNISONE) (UNKNOWN) (PREDNISONE) [Suspect]
     Active Substance: PREDNISONE
     Indication: TEMPORAL ARTERITIS
     Dosage: 40 INITIALLY, NOW 2.5 MG
     Route: 048
     Dates: start: 2013

REACTIONS (4)
  - Fatigue [None]
  - Diabetes mellitus [None]
  - Night sweats [None]
  - Hot flush [None]

NARRATIVE: CASE EVENT DATE: 2013
